FAERS Safety Report 9232855 (Version 1)
Quarter: 2013Q2

REPORT INFORMATION
  Report Type: Spontaneous
  Country: US (occurrence: None)
  Receive Date: 20130415
  Receipt Date: 20130415
  Transmission Date: 20140414
  Serious: Yes (Life-Threatening, Other)
  Sender: FDA-Public Use
  Company Number: None

PATIENT
  Age: 4 Year
  Sex: Male
  Weight: 18.14 kg

DRUGS (2)
  1. CODEINE [Suspect]
     Indication: TONSILLAR DISORDER
     Dosage: HALF TSP, EVERY 4 HOURS
     Dates: start: 20130411, end: 20130413
  2. CODEINE [Suspect]
     Indication: SURGERY
     Dosage: HALF TSP, EVERY 4 HOURS
     Dates: start: 20130411, end: 20130413

REACTIONS (4)
  - Cyanosis [None]
  - Chills [None]
  - Confusional state [None]
  - Body temperature decreased [None]
